FAERS Safety Report 6298988-X (Version None)
Quarter: 2009Q3

REPORT INFORMATION
  Report Type: 
  Country: None (occurrence: None)
  Receive Date: 20090804
  Receipt Date: 20090722
  Transmission Date: 20100115
  Serious: Yes (Other)
  Sender: FDA-Public Use
  Company Number: 2008S1000037

PATIENT
  Age: 52 Year
  Sex: Male

DRUGS (17)
  1. CUBICIN [Suspect]
     Indication: STAPHYLOCOCCAL INFECTION
     Dosage: 350 MG; Q24H; IV
     Route: 042
     Dates: start: 20071219, end: 20071229
  2. FILGRASTIM (FILGRASTIM) [Suspect]
     Indication: GRANULOCYTE COUNT DECREASED
     Dates: start: 20071231, end: 20080101
  3. MARCUMAR [Concomitant]
  4. POTASSIUM CHLORIDE [Concomitant]
  5. OXAZEPAM [Concomitant]
  6. BETA BLOCKING AGENTS [Concomitant]
  7. GENTAMICIN [Concomitant]
  8. AMPICILLIN [Concomitant]
  9. PIRETANIDE [Concomitant]
  10. HYDROCORTISONE [Concomitant]
  11. METAMIZOLE [Concomitant]
  12. CEFTRIAXONE [Concomitant]
  13. FLUCLOXACILLIN [Concomitant]
  14. INSULIN [Concomitant]
  15. TRAMADOL [Concomitant]
  16. VANCOMYCIN [Concomitant]
  17. RIFAMPICIN [Concomitant]

REACTIONS (10)
  - AGRANULOCYTOSIS [None]
  - DRUG INTOLERANCE [None]
  - DRUG TOXICITY [None]
  - GASTRIC DISORDER [None]
  - GRANULOCYTE COUNT DECREASED [None]
  - HEART VALVE REPLACEMENT [None]
  - HYPERTENSION [None]
  - RASH [None]
  - RENAL FAILURE [None]
  - SLEEP DISORDER [None]
